FAERS Safety Report 4679733-8 (Version None)
Quarter: 2005Q2

REPORT INFORMATION
  Report Type: 
  Country: None (occurrence: None)
  Receive Date: 20050531
  Receipt Date: 20050518
  Transmission Date: 20051028
  Serious: Yes (Hospitalization)
  Sender: FDA-Public Use
  Company Number: 2005060424

PATIENT
  Age: 37 Year
  Sex: Male

DRUGS (5)
  1. ZOLOFT [Suspect]
     Indication: ILL-DEFINED DISORDER
  2. COAPROVEL (HYDROCHLOROTHIAZIDE, IRBESARTAN) [Concomitant]
  3. BISOPROLOL FUMARATE [Concomitant]
  4. MOXONIDINE (MOXONIDINE) [Concomitant]
  5. ZOLPIDEM TARTRATE [Concomitant]

REACTIONS (4)
  - EPILEPSY [None]
  - INSOMNIA [None]
  - MALABSORPTION [None]
  - NIGHT SWEATS [None]
